FAERS Safety Report 24362813 (Version 3)
Quarter: 2024Q4

REPORT INFORMATION
  Report Type: Spontaneous
  Country: FR (occurrence: FR)
  Receive Date: 20240925
  Receipt Date: 20241122
  Transmission Date: 20250115
  Serious: Yes (Death, Hospitalization, Other)
  Sender: SANOFI AVENTIS
  Company Number: None

PATIENT
  Age: 67 Year
  Sex: Male
  Weight: 53 kg

DRUGS (45)
  1. HEPARIN CALCIUM [Suspect]
     Active Substance: HEPARIN CALCIUM
     Indication: Thrombosis prophylaxis
     Dosage: 5000 IU, QD
     Route: 058
     Dates: start: 20211216, end: 20211222
  2. LOVENOX [Suspect]
     Active Substance: ENOXAPARIN SODIUM
     Indication: Thrombosis prophylaxis
     Dosage: 4000 UI X 2 / DAY
     Route: 058
     Dates: start: 20211215, end: 20211216
  3. LOVENOX [Suspect]
     Active Substance: ENOXAPARIN SODIUM
     Dosage: 4000 UI X 2 / DAY
     Route: 058
     Dates: start: 20211216, end: 20211222
  4. LOVENOX [Suspect]
     Active Substance: ENOXAPARIN SODIUM
     Dosage: 4000 UI X 2 / DAY
     Route: 058
     Dates: start: 20211222, end: 20211230
  5. PREGABALIN [Concomitant]
     Active Substance: PREGABALIN
     Dosage: UNK
  6. LIDOCAINE [Concomitant]
     Active Substance: LIDOCAINE
     Dosage: UNK
  7. ZOPICLONE [Concomitant]
     Active Substance: ZOPICLONE
     Dosage: UNK
  8. ALPRAZOLAM [Concomitant]
     Active Substance: ALPRAZOLAM
     Dosage: UNK
  9. POTASSIUM CHLORIDE [Concomitant]
     Active Substance: POTASSIUM CHLORIDE
     Dosage: UNK
  10. POTASSIUM CHLORIDE [Concomitant]
     Active Substance: POTASSIUM CHLORIDE
  11. POTASSIUM CHLORIDE [Concomitant]
     Active Substance: POTASSIUM CHLORIDE
  12. DUPHALAC [Concomitant]
     Active Substance: LACTULOSE
     Dosage: UNK
  13. DUPHALAC [Concomitant]
     Active Substance: LACTULOSE
  14. DUPHALAC [Concomitant]
     Active Substance: LACTULOSE
  15. VALACYCLOVIR HYDROCHLORIDE [Concomitant]
     Active Substance: VALACYCLOVIR HYDROCHLORIDE
     Dosage: UNK
  16. VALACYCLOVIR HYDROCHLORIDE [Concomitant]
     Active Substance: VALACYCLOVIR HYDROCHLORIDE
  17. VALACYCLOVIR HYDROCHLORIDE [Concomitant]
     Active Substance: VALACYCLOVIR HYDROCHLORIDE
  18. DOLIPRANE [Concomitant]
     Active Substance: ACETAMINOPHEN
     Dosage: UNK
  19. DOLIPRANE [Concomitant]
     Active Substance: ACETAMINOPHEN
  20. DOLIPRANE [Concomitant]
     Active Substance: ACETAMINOPHEN
  21. CELLCEPT [Concomitant]
     Active Substance: MYCOPHENOLATE MOFETIL
     Dosage: UNK
  22. CELLCEPT [Concomitant]
     Active Substance: MYCOPHENOLATE MOFETIL
  23. CELLCEPT [Concomitant]
     Active Substance: MYCOPHENOLATE MOFETIL
  24. KARDEGIC [Concomitant]
     Active Substance: ASPIRIN DL-LYSINE
     Dosage: UNK
  25. KARDEGIC [Concomitant]
     Active Substance: ASPIRIN DL-LYSINE
  26. KARDEGIC [Concomitant]
     Active Substance: ASPIRIN DL-LYSINE
  27. PROGRAF [Concomitant]
     Active Substance: TACROLIMUS
     Dosage: UNK
  28. PROGRAF [Concomitant]
     Active Substance: TACROLIMUS
  29. PROGRAF [Concomitant]
     Active Substance: TACROLIMUS
  30. Solupred [Concomitant]
     Dosage: UNK
  31. Solupred [Concomitant]
  32. Solupred [Concomitant]
  33. BISOPROLOL FUMARATE [Concomitant]
     Active Substance: BISOPROLOL FUMARATE
     Dosage: UNK
  34. PANTOPRAZOLE [Concomitant]
     Active Substance: PANTOPRAZOLE
     Dosage: UNK
  35. PANTOPRAZOLE [Concomitant]
     Active Substance: PANTOPRAZOLE
  36. PANTOPRAZOLE [Concomitant]
     Active Substance: PANTOPRAZOLE
  37. HUMALOG [Concomitant]
     Active Substance: INSULIN LISPRO
     Dosage: UNK
  38. HUMALOG [Concomitant]
     Active Substance: INSULIN LISPRO
  39. HUMALOG [Concomitant]
     Active Substance: INSULIN LISPRO
  40. INSULIN GLARGINE [Concomitant]
     Active Substance: INSULIN GLARGINE
     Dosage: UNK
  41. INSULIN GLARGINE [Concomitant]
     Active Substance: INSULIN GLARGINE
  42. INSULIN GLARGINE [Concomitant]
     Active Substance: INSULIN GLARGINE
  43. BISOPROLOL [Concomitant]
     Active Substance: BISOPROLOL
  44. BISOPROLOL [Concomitant]
     Active Substance: BISOPROLOL
  45. PREGABALIN [Concomitant]
     Active Substance: PREGABALIN

REACTIONS (6)
  - Septic shock [Fatal]
  - Respiratory failure [Unknown]
  - Heparin-induced thrombocytopenia [Recovering/Resolving]
  - Hyperlactacidaemia [Recovered/Resolved]
  - Anti-platelet factor 4 antibody positive [Not Recovered/Not Resolved]
  - Heparin-induced thrombocytopenia test [Not Recovered/Not Resolved]

NARRATIVE: CASE EVENT DATE: 20211222
